FAERS Safety Report 17077978 (Version 1)
Quarter: 2019Q4

REPORT INFORMATION
  Report Type: Spontaneous
  Country: HR (occurrence: HR)
  Receive Date: 20191126
  Receipt Date: 20191126
  Transmission Date: 20200122
  Serious: Yes (Other)
  Sender: FDA-Public Use
  Company Number: HR-PFIZER INC-2019511184

PATIENT
  Age: 61 Year
  Sex: Female

DRUGS (2)
  1. PREGABALIN. [Suspect]
     Active Substance: PREGABALIN
     Dosage: UNK
     Route: 048
     Dates: start: 20190929, end: 20190929
  2. LOQUEN XR [Suspect]
     Active Substance: QUETIAPINE
     Dosage: 4 G, UNK
     Route: 048
     Dates: start: 20190929, end: 20190929

REACTIONS (3)
  - Suicide attempt [Unknown]
  - Somnolence [Recovering/Resolving]
  - Intentional overdose [Unknown]

NARRATIVE: CASE EVENT DATE: 20190929
